FAERS Safety Report 15400475 (Version 6)
Quarter: 2019Q1

REPORT INFORMATION
  Report Type: Report from Study
  Country: None (occurrence: US)
  Receive Date: 20180919
  Receipt Date: 20190130
  Transmission Date: 20190417
  Serious: Yes (Other)
  Sender: FDA-Public Use
  Company Number: US-ABBVIE-18K-163-2486418-00

PATIENT
  Age: 71 Year
  Sex: Male
  Weight: 93.07 kg

DRUGS (13)
  1. ATORVASTATIN [Concomitant]
     Active Substance: ATORVASTATIN
     Indication: PRODUCT USED FOR UNKNOWN INDICATION
  2. POTASSIUM [Concomitant]
     Active Substance: POTASSIUM
     Indication: MINERAL SUPPLEMENTATION
  3. KRILL OIL [Concomitant]
     Active Substance: DIETARY SUPPLEMENT
     Indication: PRODUCT USED FOR UNKNOWN INDICATION
  4. BUMEX [Concomitant]
     Active Substance: BUMETANIDE
     Indication: PRODUCT USED FOR UNKNOWN INDICATION
     Dates: end: 201707
  5. BUMEX [Concomitant]
     Active Substance: BUMETANIDE
     Dates: start: 20170730
  6. AMLODIPINE [Concomitant]
     Active Substance: AMLODIPINE BESYLATE
     Indication: PRODUCT USED FOR UNKNOWN INDICATION
     Dates: start: 2017
  7. HUMIRA [Suspect]
     Active Substance: ADALIMUMAB
     Route: 058
  8. COLCHICINE. [Suspect]
     Active Substance: COLCHICINE
     Indication: GOUT
     Route: 065
  9. DIOVAN [Concomitant]
     Active Substance: VALSARTAN
     Indication: PRODUCT USED FOR UNKNOWN INDICATION
     Dates: start: 20170830
  10. BAYER ASPIRIN [Concomitant]
     Active Substance: ASPIRIN
     Indication: PRODUCT USED FOR UNKNOWN INDICATION
  11. HUMIRA [Suspect]
     Active Substance: ADALIMUMAB
     Indication: RHEUMATOID ARTHRITIS
     Route: 058
     Dates: start: 20160601, end: 20170601
  12. PANTOPRAZOLE [Concomitant]
     Active Substance: PANTOPRAZOLE
     Indication: PRODUCT USED FOR UNKNOWN INDICATION
  13. TRAMADOL. [Concomitant]
     Active Substance: TRAMADOL
     Indication: PAIN

REACTIONS (35)
  - Blindness [Recovering/Resolving]
  - Intentional product misuse [Unknown]
  - Ligament sprain [Unknown]
  - Peripheral swelling [Unknown]
  - Pain in extremity [Unknown]
  - Nausea [Recovered/Resolved]
  - Pneumonia [Unknown]
  - Cardiac failure congestive [Unknown]
  - Respiratory disorder [Unknown]
  - Protein urine present [Unknown]
  - Eye infection [Unknown]
  - Joint swelling [Unknown]
  - Balance disorder [Unknown]
  - Frostbite [Unknown]
  - Pain in extremity [Unknown]
  - Bronchitis [Unknown]
  - Heart rate decreased [Unknown]
  - Inappropriate schedule of product administration [Unknown]
  - Skin disorder [Unknown]
  - Pain [Unknown]
  - Pruritus [Unknown]
  - Gout [Unknown]
  - Peripheral swelling [Unknown]
  - Exposure to extreme temperature [Unknown]
  - Asthenia [Unknown]
  - Foot deformity [Unknown]
  - Renal function test abnormal [Unknown]
  - Productive cough [Recovering/Resolving]
  - Therapeutic response shortened [Unknown]
  - Nasopharyngitis [Unknown]
  - Blood uric acid increased [Unknown]
  - Fatigue [Unknown]
  - Lipoma [Recovering/Resolving]
  - Diarrhoea [Recovered/Resolved]
  - Pain [Unknown]

NARRATIVE: CASE EVENT DATE: 2016
